FAERS Safety Report 9079742 (Version 1)
Quarter: 2013Q1

REPORT INFORMATION
  Report Type: Spontaneous
  Country: MX (occurrence: MX)
  Receive Date: 20130215
  Receipt Date: 20130215
  Transmission Date: 20140127
  Serious: Yes (Death)
  Sender: FDA-Public Use
  Company Number: MX-GLAXOSMITHKLINE-A1012133A

PATIENT
  Age: 52 Year
  Sex: Male

DRUGS (2)
  1. AVODART [Suspect]
     Indication: PROSTATIC DISORDER
     Route: 048
     Dates: start: 20110421, end: 20120421
  2. MORPHINE [Concomitant]
     Indication: NERVOUS SYSTEM DISORDER

REACTIONS (3)
  - Malignant melanoma [Fatal]
  - Cerebrovascular disorder [Unknown]
  - Convulsion [Unknown]
